FAERS Safety Report 6897748-6 (Version None)
Quarter: 2010Q3

REPORT INFORMATION
  Report Type: 
  Country: None (occurrence: None)
  Receive Date: 20100802
  Receipt Date: 20070710
  Transmission Date: 20110219
  Serious: No
  Sender: FDA-Public Use
  Company Number: US-PFIZER INC-2007059965

PATIENT

DRUGS (2)
  1. LYRICA [Suspect]
     Indication: FIBROMYALGIA
  2. PROPRANOLOL HYDROCHLORIDE [Interacting]
     Indication: TREMOR

REACTIONS (3)
  - DRUG INTERACTION [None]
  - SPEECH DISORDER [None]
  - TREMOR [None]
